FAERS Safety Report 10502690 (Version 1)
Quarter: 2014Q4

REPORT INFORMATION
  Report Type: Spontaneous
  Country: US (occurrence: None)
  Receive Date: 20141003
  Receipt Date: 20141003
  Transmission Date: 20150528
  Serious: Yes (Life-Threatening, Hospitalization, Disabling, Other)
  Sender: FDA-Public Use
  Company Number: 2014COR00084

PATIENT
  Age: 14 Year
  Sex: Female

DRUGS (3)
  1. OXYCODONE TABLET (OXYCODONE) TABLET [Suspect]
     Active Substance: OXYCODONE
     Route: 048
  2. LIDOCAINE (LIDOCAINE) [Concomitant]
     Active Substance: LIDOCAINE
  3. CAFFEINE. [Concomitant]
     Active Substance: CAFFEINE

REACTIONS (13)
  - Multi-organ disorder [None]
  - Pulse absent [None]
  - Movement disorder [None]
  - Heart rate increased [None]
  - Blood creatinine increased [None]
  - Alanine aminotransferase increased [None]
  - Apnoea [None]
  - Toxic encephalopathy [None]
  - Aspartate aminotransferase increased [None]
  - Overdose [None]
  - Sleep disorder [None]
  - Drug screen positive [None]
  - Mental status changes [None]
